FAERS Safety Report 7158829-5 (Version None)
Quarter: 2010Q4

REPORT INFORMATION
  Report Type: 
  Country: None (occurrence: None)
  Receive Date: 20101214
  Receipt Date: 20100831
  Transmission Date: 20110411
  Serious: No
  Sender: FDA-Public Use
  Company Number: US-ASTRAZENECA-2010SE31829

PATIENT
  Age: 84 Year
  Sex: Female

DRUGS (2)
  1. CRESTOR [Suspect]
     Indication: BLOOD CHOLESTEROL INCREASED
     Route: 048
     Dates: start: 20100401
  2. CRESTOR [Suspect]
     Route: 048

REACTIONS (6)
  - ASTHENIA [None]
  - CHEST DISCOMFORT [None]
  - FEELING ABNORMAL [None]
  - LETHARGY [None]
  - MUSCULAR WEAKNESS [None]
  - WRONG TECHNIQUE IN DRUG USAGE PROCESS [None]
